FAERS Safety Report 22385854 (Version 1)
Quarter: 2023Q2

REPORT INFORMATION
  Report Type: Spontaneous
  Country: EG (occurrence: EG)
  Receive Date: 20230530
  Receipt Date: 20230530
  Transmission Date: 20230722
  Serious: Yes (Other)
  Sender: FDA-Public Use
  Company Number: EG-BAUSCHBL-2023BNL004491

PATIENT
  Age: 23 Year
  Sex: Female

DRUGS (5)
  1. PREDNISOLONE ACETATE [Suspect]
     Active Substance: PREDNISOLONE ACETATE
     Indication: Postoperative care
     Route: 065
  2. PREDNISOLONE ACETATE [Suspect]
     Active Substance: PREDNISOLONE ACETATE
     Indication: Corneal scar
     Route: 065
  3. MOXIFLOXACIN [Concomitant]
     Active Substance: MOXIFLOXACIN
     Indication: Postoperative care
  4. BALANCED SALT SOLUTION [Concomitant]
     Active Substance: CALCIUM CHLORIDE\MAGNESIUM CHLORIDE\POTASSIUM CHLORIDE\SODIUM ACETATE\SODIUM CHLORIDE\SODIUM CITRATE
     Indication: Intraoperative care
  5. MITOMYCIN C [Concomitant]
     Active Substance: MITOMYCIN
     Indication: Intraoperative care
     Dosage: APPLIED FOR 60 SECONDS AFTER THE SECOND STEP OF THE PROCEDURE

REACTIONS (3)
  - Intraocular pressure increased [Recovered/Resolved]
  - Asthenopia [Recovered/Resolved]
  - Headache [Recovered/Resolved]
